FAERS Safety Report 21837568 (Version 1)
Quarter: 2023Q1

REPORT INFORMATION
  Report Type: Spontaneous
  Country: US (occurrence: None)
  Receive Date: 20230106
  Receipt Date: 20230106
  Transmission Date: 20230418
  Serious: No
  Sender: FDA-Public Use
  Company Number: None

PATIENT
  Age: 72 Year
  Sex: Female
  Weight: 81 kg

DRUGS (1)
  1. NABUMETONE [Suspect]
     Active Substance: NABUMETONE
     Indication: Arthritis
     Route: 048

REACTIONS (3)
  - Vaginal haemorrhage [None]
  - Anal haemorrhage [None]
  - Urethral haemorrhage [None]
